FAERS Safety Report 7379093-8 (Version None)
Quarter: 2011Q1

REPORT INFORMATION
  Report Type: 
  Country: None (occurrence: None)
  Receive Date: 20110328
  Receipt Date: 20110323
  Transmission Date: 20110831
  Serious: Yes (Death, Other)
  Sender: FDA-Public Use
  Company Number: KE-PFIZER INC-2011063961

PATIENT

DRUGS (1)
  1. VIAGRA [Suspect]

REACTIONS (2)
  - DRUG ADMINISTRATION ERROR [None]
  - DEATH [None]
